FAERS Safety Report 24836814 (Version 2)
Quarter: 2025Q1

REPORT INFORMATION
  Report Type: Spontaneous
  Country: AR (occurrence: AR)
  Receive Date: 20250113
  Receipt Date: 20250131
  Transmission Date: 20250409
  Serious: Yes (Hospitalization, Other)
  Sender: MYLAN
  Company Number: AR-MYLANLABS-2025M1001968

PATIENT
  Sex: Male

DRUGS (1)
  1. CLOZAPINE [Suspect]
     Active Substance: CLOZAPINE
     Indication: Product used for unknown indication
     Route: 065
     Dates: start: 20241122

REACTIONS (3)
  - Leukaemia [Recovering/Resolving]
  - Psychiatric symptom [Unknown]
  - Skin lesion [Recovered/Resolved]
